FAERS Safety Report 4714367-8 (Version None)
Quarter: 2005Q3

REPORT INFORMATION
  Report Type: 
  Country: None (occurrence: None)
  Receive Date: 20050714
  Receipt Date: 20050506
  Transmission Date: 20060218
  Serious: Yes (Hospitalization)
  Sender: FDA-Public Use
  Company Number: US-KINGPHARMUSA00001-K200500597

PATIENT
  Age: 77 Year
  Sex: Male

DRUGS (3)
  1. ALTACE [Suspect]
     Dosage: 1.25 MG, BID
     Route: 048
  2. CEFTRIAXONE [Suspect]
     Indication: BRONCHITIS ACUTE
     Dosage: 1 G, QD
     Route: 030
     Dates: start: 20041220, end: 20041223
  3. LASIX [Concomitant]
     Dosage: 20 MG, QD
     Route: 048

REACTIONS (17)
  - BLOOD CREATINE PHOSPHOKINASE INCREASED [None]
  - BLOOD CREATININE INCREASED [None]
  - BLOOD POTASSIUM INCREASED [None]
  - BLOOD UREA INCREASED [None]
  - BUNDLE BRANCH BLOCK LEFT [None]
  - DEHYDRATION [None]
  - ELECTROCARDIOGRAM ABNORMAL [None]
  - ELECTROCARDIOGRAM T WAVE INVERSION [None]
  - EOSINOPHIL COUNT INCREASED [None]
  - HAEMODIALYSIS [None]
  - MOBILITY DECREASED [None]
  - MYOCARDIAL INFARCTION [None]
  - OLIGURIA [None]
  - RENAL FAILURE ACUTE [None]
  - RHABDOMYOLYSIS [None]
  - TROPONIN INCREASED [None]
  - VENTRICULAR HYPERTROPHY [None]
